FAERS Safety Report 5238534-2 (Version None)
Quarter: 2007Q1

REPORT INFORMATION
  Report Type: 
  Country: None (occurrence: None)
  Receive Date: 20070215
  Receipt Date: 20070207
  Transmission Date: 20070707
  Serious: Yes (Hospitalization)
  Sender: FDA-Public Use
  Company Number: GB-GLAXOSMITHKLINE-B0457444A

PATIENT
  Age: 61 Year
  Sex: Male

DRUGS (7)
  1. AVANDAMET [Suspect]
     Dosage: 1TAB TWICE PER DAY
     Route: 048
     Dates: start: 20060401
  2. ASPIRIN [Concomitant]
  3. CRESTOR [Concomitant]
  4. LISINOPRIL [Concomitant]
  5. AMLODIPINE [Concomitant]
  6. FRUSEMIDE [Concomitant]
  7. ATENOLOL [Concomitant]

REACTIONS (4)
  - DYSPNOEA [None]
  - EYE PRURITUS [None]
  - RHINORRHOEA [None]
  - WEIGHT INCREASED [None]
